FAERS Safety Report 7742664-0 (Version None)
Quarter: 2011Q3

REPORT INFORMATION
  Report Type: 
  Country: None (occurrence: None)
  Receive Date: 20110830
  Receipt Date: 20110824
  Transmission Date: 20111222
  Serious: Yes (Other)
  Sender: FDA-Public Use
  Company Number: 2011SP032279

PATIENT
  Age: 44 Year
  Sex: Female

DRUGS (6)
  1. TRAZODONE HCL [Concomitant]
  2. AMBIEN [Concomitant]
  3. PROZAC [Concomitant]
  4. KLONAPIN [Concomitant]
  5. SAPHRIS [Suspect]
     Indication: BIPOLAR I DISORDER
     Dosage: 5 MG;QD
     Dates: start: 20110601, end: 20110601
  6. SAPHRIS [Suspect]
     Indication: SCHIZOPHRENIA
     Dosage: 5 MG;QD
     Dates: start: 20110601, end: 20110601

REACTIONS (24)
  - APHAGIA [None]
  - CONFUSIONAL STATE [None]
  - MOVEMENT DISORDER [None]
  - JOINT SWELLING [None]
  - DIZZINESS [None]
  - HEADACHE [None]
  - WEIGHT DECREASED [None]
  - MUSCLE TWITCHING [None]
  - AMNESIA [None]
  - HYPOAESTHESIA ORAL [None]
  - HYPERHIDROSIS [None]
  - NAUSEA [None]
  - TOOTHACHE [None]
  - TREMOR [None]
  - CHOKING [None]
  - FEELING HOT [None]
  - CHILLS [None]
  - FOREIGN BODY [None]
  - VISION BLURRED [None]
  - AGEUSIA [None]
  - DYSPHAGIA [None]
  - FEAR [None]
  - SPEECH DISORDER [None]
  - SENSORY LOSS [None]
